FAERS Safety Report 8544654-7 (Version None)
Quarter: 2012Q3

REPORT INFORMATION
  Report Type: 
  Country: None (occurrence: None)
  Receive Date: 20120727
  Receipt Date: 20120725
  Transmission Date: 20120928
  Serious: Yes (Death)
  Sender: FDA-Public Use
  Company Number: US-ROCHE-1060460

PATIENT
  Sex: Male

DRUGS (2)
  1. IMODIUM [Concomitant]
     Indication: DIARRHOEA
     Dosage: AS OFTEN NEEDED
     Route: 048
     Dates: start: 20120201
  2. XELODA [Suspect]
     Indication: GASTRIC CANCER
     Route: 048
     Dates: start: 20120130

REACTIONS (4)
  - DEATH [None]
  - DIARRHOEA [None]
  - CYST [None]
  - PARAESTHESIA [None]
